FAERS Safety Report 6231963-X (Version None)
Quarter: 2009Q2

REPORT INFORMATION
  Report Type: 
  Country: None (occurrence: None)
  Receive Date: 20090616
  Receipt Date: 20080812
  Transmission Date: 20091009
  Serious: No
  Sender: FDA-Public Use
  Company Number: US-ABBOTT-08P-163-0452049-00

PATIENT
  Sex: Male
  Weight: 98.518 kg

DRUGS (16)
  1. GENGRAF [Suspect]
     Indication: HEART TRANSPLANT
     Dosage: 100MG + (2) 25 MG IN MORNING AND 100MG + 25 MG IN THE EVENING
     Route: 048
     Dates: start: 20010901
  2. GLIBENCLAMIDE [Concomitant]
     Indication: DIABETES MELLITUS
     Dosage: 5 MG, 2 TABS EVERY MORNING, 1 TAB AT BED TIME
     Route: 048
     Dates: start: 20080512
  3. TELLCETT [Concomitant]
     Indication: PROPHYLAXIS AGAINST TRANSPLANT REJECTION
     Route: 048
     Dates: start: 20010901
  4. FENOFIBRATE [Concomitant]
     Indication: BLOOD TRIGLYCERIDES
     Route: 048
     Dates: start: 20040101
  5. HYDRALAZINE HCL [Concomitant]
     Indication: LUNG DISORDER
     Route: 048
     Dates: start: 20010101
  6. CALCIUM CITRATE [Concomitant]
     Indication: MINERAL SUPPLEMENTATION
     Route: 048
     Dates: start: 20010101
  7. FOLIC ACID [Concomitant]
     Indication: VITAMIN SUPPLEMENTATION
     Route: 048
     Dates: start: 20010101
  8. ACETYLSALICYLIC ACID [Concomitant]
     Indication: CARDIOVASCULAR DISORDER
     Route: 048
     Dates: start: 20010101
  9. ATORVASTATIN CALCIUM [Concomitant]
     Indication: BLOOD TRIGLYCERIDES
     Route: 048
     Dates: start: 20030101
  10. FISH OIL [Concomitant]
     Indication: BLOOD TRIGLYCERIDES
     Route: 048
     Dates: start: 20040101
  11. CARVEDILOL [Concomitant]
     Indication: BLOOD PRESSURE
     Dosage: 6.25MG, 1.5 TAB EVERY MORNING
     Route: 048
     Dates: start: 20080301
  12. DUTASTERIDE [Concomitant]
     Indication: PROSTATIC DISORDER
     Route: 048
     Dates: start: 20060101
  13. PIOGLITAZONE [Concomitant]
     Indication: DIABETES MELLITUS
     Route: 048
     Dates: start: 20060101
  14. ALLOPURINOL [Concomitant]
     Indication: PROPHYLAXIS
     Route: 048
     Dates: start: 20060101
  15. ALLOPURINOL [Concomitant]
     Indication: NEPHROLITHIASIS
  16. COLCHICINE [Concomitant]
     Indication: GOUT
     Route: 048
     Dates: start: 20020101

REACTIONS (3)
  - BLOOD CREATININE INCREASED [None]
  - ERECTILE DYSFUNCTION [None]
  - GOUT [None]
